FAERS Safety Report 17580897 (Version 1)
Quarter: 2020Q1

REPORT INFORMATION
  Report Type: Spontaneous
  Country: US (occurrence: US)
  Receive Date: 20200325
  Receipt Date: 20200325
  Transmission Date: 20200409
  Serious: No
  Sender: FDA-Public Use
  Company Number: US-BAYER-2020-049467

PATIENT

DRUGS (2)
  1. ALEVE [Suspect]
     Active Substance: NAPROXEN SODIUM
     Dosage: UNK
  2. MORPHINE [Suspect]
     Active Substance: MORPHINE
     Dosage: UNK

REACTIONS (2)
  - Feeding disorder [Unknown]
  - Abdominal discomfort [Unknown]
